FAERS Safety Report 10943959 (Version 1)
Quarter: 2015Q1

REPORT INFORMATION
  Report Type: Spontaneous
  Country: FR (occurrence: FR)
  Receive Date: 20150323
  Receipt Date: 20150323
  Transmission Date: 20150721
  Serious: Yes (Hospitalization)
  Sender: FDA-Public Use
  Company Number: FR-AMGEN-FRASP2015025790

PATIENT
  Age: 48 Year
  Sex: Male

DRUGS (4)
  1. BLEOMYCIN [Suspect]
     Active Substance: BLEOMYCIN SULFATE
     Indication: UNDIFFERENTIATED NASOPHARYNGEAL CARCINOMA
     Dosage: DAY 1 (20 MG/M2, 1 IN 1 CYCLE)
     Route: 042
     Dates: start: 20141127, end: 20150112
  2. NEULASTA [Suspect]
     Active Substance: PEGFILGRASTIM
     Indication: PRODUCT USED FOR UNKNOWN INDICATION
     Dosage: DAY 5 (6 MG, 1 IN 1 CYCLE)
     Route: 058
     Dates: start: 20141127, end: 20150112
  3. EPIRUBICINE [Concomitant]
     Active Substance: EPIRUBICIN
     Indication: UNDIFFERENTIATED NASOPHARYNGEAL CARCINOMA
     Dosage: DAY (70 MG/M2, 1 IN 1 CYCLE)
     Route: 042
     Dates: start: 20141127, end: 20150112
  4. CISPLATIN. [Concomitant]
     Active Substance: CISPLATIN
     Indication: UNDIFFERENTIATED NASOPHARYNGEAL CARCINOMA
     Dosage: DAY1 (100 MG/M2, 1 IN 1 CYCLE)
     Route: 042
     Dates: start: 20141127, end: 20150112

REACTIONS (3)
  - Interstitial lung disease [Recovering/Resolving]
  - Dyspnoea [Recovering/Resolving]
  - Cough [Recovering/Resolving]

NARRATIVE: CASE EVENT DATE: 20150205
